FAERS Safety Report 20212503 (Version 1)
Quarter: 2021Q4

REPORT INFORMATION
  Report Type: Spontaneous
  Country: CN (occurrence: CN)
  Receive Date: 20211221
  Receipt Date: 20211221
  Transmission Date: 20220303
  Serious: Yes (Hospitalization)
  Sender: FDA-Public Use
  Company Number: CN-PFIZER INC-202101741331

PATIENT
  Age: 54 Year
  Sex: Male
  Weight: 57 kg

DRUGS (1)
  1. IDARUBICIN [Suspect]
     Active Substance: IDARUBICIN
     Indication: Chemotherapy
     Dosage: 20 MG, 1X/DAY
     Route: 041
     Dates: start: 20211024, end: 20211027

REACTIONS (4)
  - Myelosuppression [Recovering/Resolving]
  - Cytopenia [Recovering/Resolving]
  - Immune system disorder [Recovering/Resolving]
  - Infection [Recovering/Resolving]

NARRATIVE: CASE EVENT DATE: 20211103
